FAERS Safety Report 13533025 (Version 2)
Quarter: 2017Q2

REPORT INFORMATION
  Report Type: Spontaneous
  Country: NL (occurrence: NL)
  Receive Date: 20170510
  Receipt Date: 20170517
  Transmission Date: 20170830
  Serious: Yes (Hospitalization)
  Sender: FDA-Public Use
  Company Number: PHHY2017NL065880

PATIENT
  Sex: Female
  Weight: 73 kg

DRUGS (1)
  1. MYFORTIC [Suspect]
     Active Substance: MYCOPHENOLATE SODIUM
     Indication: RETINITIS
     Dosage: 2 DF, QD (2DD1)
     Route: 065
     Dates: start: 20091119, end: 20100210

REACTIONS (7)
  - Hyperaesthesia [Not Recovered/Not Resolved]
  - General physical health deterioration [Recovered/Resolved with Sequelae]
  - Abdominal pain [Unknown]
  - Abnormal faeces [Unknown]
  - Asthenia [Not Recovered/Not Resolved]
  - Intestinal ulcer [Recovered/Resolved with Sequelae]
  - Abdominal discomfort [Not Recovered/Not Resolved]

NARRATIVE: CASE EVENT DATE: 200911
